FAERS Safety Report 10241719 (Version 1)
Quarter: 2014Q2

REPORT INFORMATION
  Report Type: Spontaneous
  Country: IT (occurrence: IT)
  Receive Date: 20140617
  Receipt Date: 20140617
  Transmission Date: 20141212
  Serious: Yes (Hospitalization)
  Sender: FDA-Public Use
  Company Number: PHHY2014IT074418

PATIENT
  Age: 63 Year
  Sex: Female

DRUGS (1)
  1. ZOMETA [Suspect]
     Indication: BREAST CANCER
     Dosage: 1 POSOLOGIC UNIT, PER CYCLICAL
     Route: 042
     Dates: start: 20080101, end: 20121130

REACTIONS (1)
  - Osteonecrosis of jaw [Recovering/Resolving]
